FAERS Safety Report 7023618-9 (Version None)
Quarter: 2010Q3

REPORT INFORMATION
  Report Type: 
  Country: None (occurrence: None)
  Receive Date: 20100930
  Receipt Date: 20100930
  Transmission Date: 20110219
  Serious: No
  Sender: FDA-Public Use
  Company Number: None

PATIENT
  Sex: Female
  Weight: 61.2356 kg

DRUGS (1)
  1. PROCRIT [Suspect]
     Indication: NEPHROGENIC ANAEMIA
     Dosage: 30,000 U/ML EVERY 2 WEEKS SQ
     Route: 058
     Dates: start: 20100624, end: 20100825

REACTIONS (4)
  - ERYTHEMA [None]
  - INFLAMMATION [None]
  - PAIN IN EXTREMITY [None]
  - SKIN IRRITATION [None]
